FAERS Safety Report 8629273 (Version 3)
Quarter: 2012Q4

REPORT INFORMATION
  Report Type: 
  Country: US (occurrence: US)
  Receive Date: 20120621
  Receipt Date: 20121003
  Transmission Date: 20130627
  Serious: Yes (Hospitalization)
  Sender: FDA-Public Use
  Company Number: US-GILEAD-2012-0056845

PATIENT
  Age: 37 Year
  Sex: Female

DRUGS (5)
  1. LETAIRIS [Suspect]
     Indication: PULMONARY HYPERTENSION
     Dosage: 10 mg, UNK
     Route: 048
     Dates: start: 20120529
  2. LETAIRIS [Suspect]
     Indication: HYPOXIA
  3. LETAIRIS [Suspect]
     Indication: PICKWICKIAN SYNDROME
  4. LETAIRIS [Suspect]
     Indication: SLEEP APNOEA SYNDROME
  5. LASIX                              /00032601/ [Concomitant]

REACTIONS (2)
  - Renal failure acute [Unknown]
  - Renal failure [Not Recovered/Not Resolved]
